FAERS Safety Report 8614331-2 (Version None)
Quarter: 2012Q3

REPORT INFORMATION
  Report Type: 
  Country: None (occurrence: None)
  Receive Date: 20120823
  Receipt Date: 20120821
  Transmission Date: 20120928
  Serious: No
  Sender: FDA-Public Use
  Company Number: 2012SP002311

PATIENT
  Age: 60 Year
  Sex: Female
  Weight: 91 kg

DRUGS (15)
  1. ZYPREXA [Concomitant]
     Indication: BIPOLAR DISORDER
  2. LEVOTHYROXINE SODIUM [Concomitant]
     Indication: THYROID DISORDER
  3. NEXIUM /01479303/ [Concomitant]
     Indication: GASTROOESOPHAGEAL REFLUX DISEASE
  4. VERAPAMIL [Concomitant]
     Indication: ATRIOVENTRICULAR BLOCK
  5. CHOLESTYRAMINE [Concomitant]
     Indication: DIARRHOEA
  6. TRICOR [Concomitant]
     Indication: BLOOD CHOLESTEROL ABNORMAL
  7. DEPAKOTE ER [Concomitant]
     Indication: PRODUCT USED FOR UNKNOWN INDICATION
  8. VICODIN [Concomitant]
     Indication: BACK PAIN
  9. PROVIGIL [Concomitant]
     Indication: SLEEP APNOEA SYNDROME
  10. VERAPAMIL [Concomitant]
     Indication: MIGRAINE
  11. MELATONIN [Concomitant]
     Indication: PRODUCT USED FOR UNKNOWN INDICATION
  12. LATUDA [Suspect]
     Route: 048
     Dates: start: 20120722, end: 20120729
  13. ASPIRIN [Concomitant]
     Indication: PRODUCT USED FOR UNKNOWN INDICATION
  14. LATUDA [Suspect]
     Indication: BIPOLAR DISORDER
     Route: 048
     Dates: start: 20120730, end: 20120810
  15. GABAPENTIN [Concomitant]
     Indication: PRODUCT USED FOR UNKNOWN INDICATION

REACTIONS (4)
  - GENERALISED OEDEMA [None]
  - FLUID RETENTION [None]
  - DYSPNOEA [None]
  - ARTHRALGIA [None]
